FAERS Safety Report 15097409 (Version 2)
Quarter: 2018Q3

REPORT INFORMATION
  Report Type: Report from Study
  Country: DE (occurrence: DE)
  Receive Date: 20180702
  Receipt Date: 20180705
  Transmission Date: 20181010
  Serious: Yes (Hospitalization)
  Sender: FDA-Public Use
  Company Number: DE-EISAI MEDICAL RESEARCH-EC-2018-041217

PATIENT
  Age: 54 Year
  Sex: Male
  Weight: 60 kg

DRUGS (8)
  1. CLOBAZAM [Concomitant]
     Active Substance: CLOBAZAM
  2. LEVETIRACETAM. [Concomitant]
     Active Substance: LEVETIRACETAM
  3. FYCOMPA [Suspect]
     Active Substance: PERAMPANEL
     Indication: EPILEPSY
     Route: 048
     Dates: start: 201801, end: 201803
  4. LAMOTRIGIN [Concomitant]
     Active Substance: LAMOTRIGINE
  5. LACOSAMID [Concomitant]
     Active Substance: LACOSAMIDE
  6. MELPERON [Concomitant]
     Active Substance: MELPERONE
  7. PAROXETINE. [Concomitant]
     Active Substance: PAROXETINE
  8. RAMIPRIL. [Concomitant]
     Active Substance: RAMIPRIL

REACTIONS (1)
  - Aggression [Recovered/Resolved]

NARRATIVE: CASE EVENT DATE: 201802
